FAERS Safety Report 8192146-X (Version None)
Quarter: 2012Q1

REPORT INFORMATION
  Report Type: 
  Country: None (occurrence: None)
  Receive Date: 20120307
  Receipt Date: 20120222
  Transmission Date: 20120608
  Serious: Yes (Hospitalization)
  Sender: FDA-Public Use
  Company Number: BR-ASTRAZENECA-2012SE11595

PATIENT
  Age: 68 Year
  Sex: Male

DRUGS (1)
  1. CRESTOR [Suspect]
     Route: 048

REACTIONS (5)
  - METASTASES TO CENTRAL NERVOUS SYSTEM [None]
  - LUNG ADENOCARCINOMA METASTATIC [None]
  - HEPATIC CANCER METASTATIC [None]
  - NEOPLASM MALIGNANT [None]
  - METASTASES TO BONE [None]
